FAERS Safety Report 8550474-X (Version None)
Quarter: 2012Q3

REPORT INFORMATION
  Report Type: 
  Country: None (occurrence: None)
  Receive Date: 20120730
  Receipt Date: 20120716
  Transmission Date: 20120928
  Serious: Yes (Hospitalization, Other)
  Sender: FDA-Public Use
  Company Number: FR-ELI_LILLY_AND_COMPANY-FR201207004549

PATIENT
  Sex: Male

DRUGS (1)
  1. OLANZAPINE [Suspect]
     Dosage: 0.036 DF, UNKNOWN
     Route: 030
     Dates: start: 20120128

REACTIONS (6)
  - VERTIGO [None]
  - TACHYCARDIA [None]
  - AGGRESSION [None]
  - EXTRAPYRAMIDAL DISORDER [None]
  - HYPERTENSION [None]
  - SOMNOLENCE [None]
